FAERS Safety Report 25543548 (Version 1)
Quarter: 2025Q3

REPORT INFORMATION
  Report Type: Spontaneous
  Country: CA (occurrence: CA)
  Receive Date: 20250711
  Receipt Date: 20250711
  Transmission Date: 20251020
  Serious: Yes (Death, Other)
  Sender: RANBAXY
  Company Number: CA-SUN PHARMACEUTICAL INDUSTRIES LTD-2025R1-515911

PATIENT
  Age: 49 Year
  Sex: Male

DRUGS (1)
  1. CAPECITABINE [Suspect]
     Active Substance: CAPECITABINE
     Indication: Product used for unknown indication
     Route: 048

REACTIONS (7)
  - Pyrexia [Fatal]
  - Acute respiratory distress syndrome [Fatal]
  - Hypoxia [Fatal]
  - Mucosal inflammation [Fatal]
  - Neutrophil count decreased [Fatal]
  - Platelet count decreased [Fatal]
  - Pneumonia [Fatal]
